FAERS Safety Report 12137058 (Version 3)
Quarter: 2016Q3

REPORT INFORMATION
  Report Type: Spontaneous
  Country: US (occurrence: US)
  Receive Date: 20160302
  Receipt Date: 20160706
  Transmission Date: 20161109
  Serious: Yes (Hospitalization, Other)
  Sender: FDA-Public Use
  Company Number: US-BRISTOL-MYERS SQUIBB COMPANY-BMS-2016-013080

PATIENT
  Age: 43 Year
  Sex: Male

DRUGS (3)
  1. NIVOLUMAB [Suspect]
     Active Substance: NIVOLUMAB
     Indication: RENAL CELL CARCINOMA
     Dosage: UNK
     Route: 042
     Dates: start: 201202
  2. VOTRIENT [Suspect]
     Active Substance: PAZOPANIB HYDROCHLORIDE
     Indication: RENAL CELL CARCINOMA
     Dosage: UNK
     Route: 065
     Dates: start: 201102, end: 201401
  3. LIPITOR [Concomitant]
     Active Substance: ATORVASTATIN CALCIUM
     Indication: PRODUCT USED FOR UNKNOWN INDICATION
     Route: 065

REACTIONS (12)
  - Colitis [Recovered/Resolved]
  - Feeling cold [Unknown]
  - Vitiligo [Unknown]
  - Thyroid disorder [Recovering/Resolving]
  - Diarrhoea [Unknown]
  - Tumour pain [Unknown]
  - Vomiting [Unknown]
  - Type 1 diabetes mellitus [Unknown]
  - Renal neoplasm [Unknown]
  - Hypertension [Unknown]
  - Pain [Unknown]
  - Pancreatic disorder [Unknown]

NARRATIVE: CASE EVENT DATE: 201501
